FAERS Safety Report 5627747-3 (Version None)
Quarter: 2008Q1

REPORT INFORMATION
  Report Type: 
  Country: None (occurrence: None)
  Receive Date: 20080215
  Receipt Date: 20080211
  Transmission Date: 20080703
  Serious: Yes (Death)
  Sender: FDA-Public Use
  Company Number: A0702780A

PATIENT
  Sex: Female

DRUGS (4)
  1. ZOFRAN [Suspect]
     Indication: DRUG USE FOR UNKNOWN INDICATION
     Route: 065
  2. CHEMOTHERAPY [Concomitant]
  3. NAVELBINE [Concomitant]
  4. ZOMETA [Concomitant]

REACTIONS (1)
  - BREAST CANCER METASTATIC [None]
